FAERS Safety Report 16364132 (Version 12)
Quarter: 2021Q4

REPORT INFORMATION
  Report Type: Spontaneous
  Country: GB (occurrence: GB)
  Receive Date: 20190528
  Receipt Date: 20211123
  Transmission Date: 20220303
  Serious: Yes (Hospitalization, Other)
  Sender: FDA-Public Use
  Company Number: GB-SHIRE-GB201917102

PATIENT
  Age: 21 Year
  Sex: Female

DRUGS (33)
  1. PRUCALOPRIDE [Suspect]
     Active Substance: PRUCALOPRIDE
     Indication: Product used for unknown indication
     Dosage: 2 MILLIGRAM, QD
     Route: 048
  2. COCODAMOL [Suspect]
     Active Substance: ACETAMINOPHEN\CODEINE PHOSPHATE
     Indication: Product used for unknown indication
     Dosage: 8 DOSAGE FORM, DAILY, 30MG/500MG
     Route: 048
  3. COCODAMOL [Suspect]
     Active Substance: ACETAMINOPHEN\CODEINE PHOSPHATE
     Dosage: 32 DOSAGE FORM, QD
     Route: 048
  4. METOCLOPRAMIDE [Suspect]
     Active Substance: METOCLOPRAMIDE
     Indication: Abdominal pain
     Dosage: 10 MILLIGRAM, Q8HR
     Route: 065
  5. METOCLOPRAMIDE [Suspect]
     Active Substance: METOCLOPRAMIDE
     Indication: Vomiting
     Dosage: 50 MILLIGRAM, QD
     Route: 065
  6. METOCLOPRAMIDE [Suspect]
     Active Substance: METOCLOPRAMIDE
     Dosage: 30 MILLIGRAM, QD
     Route: 065
  7. METOCLOPRAMIDE [Suspect]
     Active Substance: METOCLOPRAMIDE
     Dosage: 10 MILLIGRAM, TID
     Route: 065
  8. GABAPENTIN [Suspect]
     Active Substance: GABAPENTIN
     Indication: Product used for unknown indication
     Dosage: 3600 MILLIGRAM, ONCE DAILY (QD)
     Route: 048
  9. GABAPENTIN [Suspect]
     Active Substance: GABAPENTIN
     Dosage: 900 MILLIGRAM, QD
     Route: 048
  10. TRAMADOL HYDROCHLORIDE [Suspect]
     Active Substance: TRAMADOL HYDROCHLORIDE
     Indication: Abdominal pain
     Dosage: 400 MILLIGRAM, QD
     Route: 048
     Dates: start: 200910, end: 200911
  11. TRAMADOL HYDROCHLORIDE [Suspect]
     Active Substance: TRAMADOL HYDROCHLORIDE
     Dosage: 150 MILLIGRAM, QD
     Route: 048
     Dates: start: 200904, end: 200909
  12. TRAMADOL HYDROCHLORIDE [Suspect]
     Active Substance: TRAMADOL HYDROCHLORIDE
     Dosage: 50 MILLIGRAM, TID
     Route: 065
     Dates: start: 200909, end: 201011
  13. TRAMADOL HYDROCHLORIDE [Suspect]
     Active Substance: TRAMADOL HYDROCHLORIDE
     Dosage: 450 MILLIGRAM, MONTHLY
     Route: 048
     Dates: start: 200904, end: 200909
  14. CYCLIZINE [Suspect]
     Active Substance: CYCLIZINE
     Indication: Nausea
     Dosage: 50 MILLIGRAM, TID
     Route: 065
  15. CYCLIZINE [Suspect]
     Active Substance: CYCLIZINE
     Indication: Vomiting
     Dosage: 150 MILLIGRAM, QD
     Route: 065
  16. CYCLIZINE [Suspect]
     Active Substance: CYCLIZINE
     Dosage: 8 DOSAGE FORM, QD
     Route: 048
  17. CYCLIZINE [Suspect]
     Active Substance: CYCLIZINE
     Dosage: 100 MILLIGRAM, TID
     Route: 065
  18. BETAHISTINE [Suspect]
     Active Substance: BETAHISTINE
     Indication: Product used for unknown indication
     Dosage: 24 MG, 1X/DAY, DOSAGE FORM: UNSPECIFIED
     Route: 048
  19. AMITRIPTYLINE [Suspect]
     Active Substance: AMITRIPTYLINE
     Indication: Product used for unknown indication
     Dosage: 100 MILLIGRAM, QD
     Route: 048
  20. DOMPERIDONE [Suspect]
     Active Substance: DOMPERIDONE
     Indication: Product used for unknown indication
     Dosage: 10 MILLIGRAM,UP TO THREE TIMES A DAY
     Route: 048
  21. DOMPERIDONE [Suspect]
     Active Substance: DOMPERIDONE
     Dosage: 30 MILLIGRAM, QD
     Route: 048
  22. DOMPERIDONE [Suspect]
     Active Substance: DOMPERIDONE
     Dosage: 32 DOSAGE FORM, QD
     Route: 048
  23. PREGABALIN [Suspect]
     Active Substance: PREGABALIN
     Indication: Product used for unknown indication
     Dosage: 1600 MILLIGRAM
     Route: 065
  24. PREGABALIN [Suspect]
     Active Substance: PREGABALIN
     Dosage: 450 MILLIGRAM
     Route: 065
     Dates: start: 200904, end: 200909
  25. HYDROCORTISONE [Concomitant]
     Active Substance: HYDROCORTISONE
     Dosage: 1600 MILLIGRAM, QD
     Route: 065
     Dates: start: 200910, end: 200911
  26. HYDROCORTISONE [Concomitant]
     Active Substance: HYDROCORTISONE
     Dosage: 450 MILLIGRAM, QD
     Route: 065
     Dates: start: 200904, end: 200909
  27. SUMATRIPTAN [Concomitant]
     Active Substance: SUMATRIPTAN
     Indication: Migraine
     Dosage: 50 MG, QD
     Route: 065
  28. OMEPRAZOLE [Concomitant]
     Active Substance: OMEPRAZOLE
     Indication: Dyspepsia
     Dosage: 40 MILLIGRAM, QD
     Route: 065
  29. OMEPRAZOLE [Concomitant]
     Active Substance: OMEPRAZOLE
     Indication: Dyspepsia
  30. LANSOPRAZOLE [Concomitant]
     Active Substance: LANSOPRAZOLE
     Dosage: 60 MILLIGRAM, BID
     Route: 048
  31. LANSOPRAZOLE [Concomitant]
     Active Substance: LANSOPRAZOLE
     Dosage: 60 MILLIGRAM, BID
     Route: 048
  32. IBUPROFEN [Concomitant]
     Active Substance: IBUPROFEN
     Indication: Abdominal pain
     Dosage: 50 MILLIGRAM, Q8HR
     Route: 065
  33. IBUPROFEN [Concomitant]
     Active Substance: IBUPROFEN
     Dosage: 400 MILLIGRAM, Q8HR
     Route: 065

REACTIONS (10)
  - Hyperprolactinaemia [Recovered/Resolved]
  - Vision blurred [Unknown]
  - Pituitary tumour benign [Recovering/Resolving]
  - Secondary adrenocortical insufficiency [Recovered/Resolved]
  - Lethargy [Recovered/Resolved]
  - Adrenal insufficiency [Recovered/Resolved]
  - Vomiting [Recovered/Resolved]
  - Dizziness [Recovered/Resolved]
  - Headache [Recovered/Resolved]
  - Abdominal pain [Recovered/Resolved]

NARRATIVE: CASE EVENT DATE: 20091101
